FAERS Safety Report 19881742 (Version 3)
Quarter: 2021Q4

REPORT INFORMATION
  Report Type: Spontaneous
  Country: US (occurrence: US)
  Receive Date: 20210924
  Receipt Date: 20211012
  Transmission Date: 20220303
  Serious: No
  Sender: FDA-Public Use
  Company Number: US-AMGEN-USASP2021146429

PATIENT
  Sex: Male

DRUGS (1)
  1. OTEZLA [Suspect]
     Active Substance: APREMILAST
     Indication: Psoriatic arthropathy
     Dosage: 30 MILLIGRAM, BID
     Route: 048

REACTIONS (5)
  - Swollen tongue [Unknown]
  - Dysgeusia [Unknown]
  - Nausea [Unknown]
  - Anosmia [Unknown]
  - Ageusia [Unknown]

NARRATIVE: CASE EVENT DATE: 20210101
